FAERS Safety Report 8246770-6 (Version None)
Quarter: 2012Q1

REPORT INFORMATION
  Report Type: 
  Country: None (occurrence: None)
  Receive Date: 20120320
  Receipt Date: 20120307
  Transmission Date: 20120608
  Serious: Yes (Hospitalization, Other)
  Sender: FDA-Public Use
  Company Number: AEDEU201100218

PATIENT
  Age: 57 Year
  Sex: Female
  Weight: 54 kg

DRUGS (7)
  1. CHOLECALCIFEROL [Concomitant]
  2. GAMUNEX [Suspect]
     Indication: CHRONIC INFLAMMATORY DEMYELINATING POLYRADICULONEUROPATHY
     Dosage: 20 GM;IV
     Route: 042
     Dates: start: 20091219, end: 20110728
  3. OMEPRAZOLE [Concomitant]
  4. MAGNESIUM [Concomitant]
  5. PRIVIGEN [Suspect]
     Indication: CHRONIC INFLAMMATORY DEMYELINATING POLYRADICULONEUROPATHY
     Dosage: 20 GM;X1;IV
     Route: 042
     Dates: start: 20090811, end: 20090811
  6. BISOPROLOL FUMARATE [Concomitant]
  7. IGIV (MANUFACTURE UNKNOWN) (IMMUNE GLOBULIN IV (HUMAN), CAPRYLATE/CHRO [Suspect]
     Indication: CHRONIC INFLAMMATORY DEMYELINATING POLYRADICULONEUROPATHY
     Dosage: X1;IV
     Route: 042
     Dates: start: 20110401, end: 20110401

REACTIONS (8)
  - NAUSEA [None]
  - IMMUNISATION [None]
  - ASTHENIA [None]
  - HEPATITIS B CORE ANTIBODY POSITIVE [None]
  - HEPATITIS A ANTIBODY POSITIVE [None]
  - DRUG INTOLERANCE [None]
  - HEPATITIS B SURFACE ANTIBODY POSITIVE [None]
  - DIZZINESS [None]
